FAERS Safety Report 20538787 (Version 1)
Quarter: 2022Q1

REPORT INFORMATION
  Report Type: Spontaneous
  Country: JP (occurrence: JP)
  Receive Date: 20220302
  Receipt Date: 20220302
  Transmission Date: 20220423
  Serious: Yes (Other)
  Sender: FDA-Public Use
  Company Number: JP-JNJFOC-20210907595

PATIENT
  Age: 34 Year
  Sex: Female

DRUGS (2)
  1. SIMPONI [Suspect]
     Active Substance: GOLIMUMAB
     Indication: Colitis ulcerative
     Dosage: DOSE UNKNOWN?GOLIMUMAB (GENETICAL RECOMBINATION):50MG
     Route: 058
  2. AZATHIOPRINE [Suspect]
     Active Substance: AZATHIOPRINE
     Indication: Colitis ulcerative
     Dosage: DOSE UNKNOWN
     Route: 048

REACTIONS (2)
  - Pancreatitis [Recovered/Resolved]
  - Drug ineffective [Recovered/Resolved]
